FAERS Safety Report 5982913-2 (Version None)
Quarter: 2008Q4

REPORT INFORMATION
  Report Type: 
  Country: None (occurrence: None)
  Receive Date: 20081205
  Receipt Date: 20081205
  Transmission Date: 20090506
  Serious: Yes (Other)
  Sender: FDA-Public Use
  Company Number: None

PATIENT
  Age: 17 Year
  Sex: Male
  Weight: 68.0396 kg

DRUGS (1)
  1. ACCUTANE [Suspect]

REACTIONS (2)
  - ALOPECIA [None]
  - EMOTIONAL DISORDER [None]
